FAERS Safety Report 7373621-4 (Version None)
Quarter: 2011Q1

REPORT INFORMATION
  Report Type: 
  Country: None (occurrence: None)
  Receive Date: 20110314
  Receipt Date: 20110302
  Transmission Date: 20110831
  Serious: Yes (Hospitalization, Other)
  Sender: FDA-Public Use
  Company Number: 2011AP000388

PATIENT
  Age: 49 Year
  Sex: Male

DRUGS (1)
  1. TERBINAFINE HYDROCHLORIDE [Suspect]
     Indication: NAIL INFECTION
     Dosage: 250 MG;PO;QD
     Route: 048
     Dates: start: 20101230, end: 20110219

REACTIONS (11)
  - ABDOMINAL PAIN UPPER [None]
  - GAMMA-GLUTAMYLTRANSFERASE INCREASED [None]
  - VOMITING [None]
  - JAUNDICE CHOLESTATIC [None]
  - ALANINE AMINOTRANSFERASE INCREASED [None]
  - PANCREATITIS [None]
  - CHOLESTASIS [None]
  - CHOLECYSTITIS ACUTE [None]
  - BLOOD AMYLASE INCREASED [None]
  - ASPARTATE AMINOTRANSFERASE INCREASED [None]
  - BLOOD BILIRUBIN INCREASED [None]
